FAERS Safety Report 4292578-6 (Version None)
Quarter: 2004Q1

REPORT INFORMATION
  Report Type: 
  Country: None (occurrence: None)
  Receive Date: 20040211
  Receipt Date: 20040211
  Transmission Date: 20041129
  Serious: Yes (Other)
  Sender: FDA-Public Use
  Company Number: None

PATIENT
  Sex: Female
  Weight: 97.5234 kg

DRUGS (4)
  1. PAXIL [Suspect]
     Indication: ANXIETY DISORDER
     Dosage: 40 MG DAILY ORAL
     Route: 048
     Dates: start: 19991215, end: 20030715
  2. PAXIL [Suspect]
     Indication: DEPRESSION
     Dosage: 40 MG DAILY ORAL
     Route: 048
     Dates: start: 19991215, end: 20030715
  3. PAXIL CR [Suspect]
     Indication: ANXIETY DISORDER
     Dosage: 12.5 MG DAILY ORAL
     Route: 048
     Dates: start: 20030715, end: 20040115
  4. PAXIL CR [Suspect]
     Indication: DEPRESSION
     Dosage: 12.5 MG DAILY ORAL
     Route: 048
     Dates: start: 20030715, end: 20040115

REACTIONS (4)
  - DRUG WITHDRAWAL SYNDROME [None]
  - IRRITABILITY [None]
  - MIGRAINE [None]
  - NERVOUSNESS [None]
